FAERS Safety Report 6219217-9 (Version None)
Quarter: 2009Q2

REPORT INFORMATION
  Report Type: 
  Country: None (occurrence: None)
  Receive Date: 20090605
  Receipt Date: 20090605
  Transmission Date: 20091009
  Serious: Yes (Other)
  Sender: FDA-Public Use
  Company Number: None

PATIENT
  Age: 56 Year
  Sex: Male
  Weight: 82.5547 kg

DRUGS (1)
  1. SULFAMETHOXAZOLE AND TRIMETHOPRIM [Suspect]
     Indication: DECUBITUS ULCER
     Dosage: ONE TABLET TWICE DAILY PO
     Route: 048
     Dates: start: 20090524, end: 20090603

REACTIONS (6)
  - ABDOMINAL DISCOMFORT [None]
  - GENITAL INFECTION FUNGAL [None]
  - GENITAL INFECTION MALE [None]
  - GENITAL RASH [None]
  - HEADACHE [None]
  - SKIN EXFOLIATION [None]
